FAERS Safety Report 6847394-5 (Version None)
Quarter: 2010Q3

REPORT INFORMATION
  Report Type: 
  Country: None (occurrence: None)
  Receive Date: 20100713
  Receipt Date: 20100705
  Transmission Date: 20110219
  Serious: Yes (Hospitalization, Other)
  Sender: FDA-Public Use
  Company Number: 2010SP009458

PATIENT
  Age: 45 Year
  Sex: Female

DRUGS (9)
  1. MIRTAZAPINE [Suspect]
     Indication: DEPRESSION
     Dosage: 15 MG;QD;PO, 30 MG;QD;PO
     Route: 048
     Dates: start: 20091119, end: 20091202
  2. MIRTAZAPINE [Suspect]
     Indication: DEPRESSION
     Dosage: 15 MG;QD;PO, 30 MG;QD;PO
     Route: 048
     Dates: start: 20091203, end: 20091214
  3. CLONAZEPAM [Concomitant]
  4. VALPROATE SODIUM [Concomitant]
  5. FLURAZEPAM [Concomitant]
  6. HYDROCHLORIDE [Concomitant]
  7. LEVOMEPROMAZINE MALEATE [Concomitant]
  8. FLUNITRAZEPAM [Concomitant]
  9. PAXIL [Concomitant]

REACTIONS (4)
  - AGGRESSION [None]
  - BLOOD CREATINE PHOSPHOKINASE INCREASED [None]
  - PARAESTHESIA [None]
  - SUSPICIOUSNESS [None]
